FAERS Safety Report 20675891 (Version 1)
Quarter: 2022Q2

REPORT INFORMATION
  Report Type: Spontaneous
  Country: US (occurrence: US)
  Receive Date: 20220405
  Receipt Date: 20220405
  Transmission Date: 20220721
  Serious: No
  Sender: FDA-Public Use
  Company Number: US-SANOFI-01045429

PATIENT
  Sex: Male

DRUGS (2)
  1. SELSUN BLUE 2-IN-1 [Suspect]
     Active Substance: SELENIUM SULFIDE
  2. PYRITHIONE ZINC [Concomitant]
     Active Substance: PYRITHIONE ZINC

REACTIONS (1)
  - Hair colour changes [Unknown]
